FAERS Safety Report 21843524 (Version 1)
Quarter: 2023Q1

REPORT INFORMATION
  Report Type: Spontaneous
  Country: US (occurrence: None)
  Receive Date: 20230109
  Receipt Date: 20230109
  Transmission Date: 20230417
  Serious: Yes (Disabling)
  Sender: FDA-Public Use
  Company Number: None

PATIENT
  Age: 59 Year
  Sex: Male

DRUGS (1)
  1. EMPAGLIFLOZIN [Suspect]
     Active Substance: EMPAGLIFLOZIN

REACTIONS (7)
  - Sepsis [None]
  - Gas gangrene [None]
  - Peroneal nerve palsy [None]
  - Wound [None]
  - Diabetes mellitus inadequate control [None]
  - Diabetic foot [None]
  - Limb amputation [None]

NARRATIVE: CASE EVENT DATE: 20221214
